FAERS Safety Report 11976548 (Version 1)
Quarter: 2016Q1

REPORT INFORMATION
  Report Type: Spontaneous
  Country: US (occurrence: None)
  Receive Date: 20160128
  Receipt Date: 20160128
  Transmission Date: 20160526
  Serious: No
  Sender: FDA-Public Use
  Company Number: None

PATIENT
  Age: 65 Year
  Sex: Male

DRUGS (3)
  1. TOBRAMYCIN 300MG PER 5 ML AKORN [Suspect]
     Active Substance: TOBRAMYCIN
     Indication: CYSTIC FIBROSIS
     Route: 055
     Dates: start: 20150505
  2. PULMOZYME [Concomitant]
     Active Substance: DORNASE ALFA
  3. AZITHROMYCIN ANHYDROUS. [Concomitant]
     Active Substance: AZITHROMYCIN ANHYDROUS

REACTIONS (4)
  - Speech disorder [None]
  - Dysphonia [None]
  - Condition aggravated [None]
  - Dyspnoea [None]

NARRATIVE: CASE EVENT DATE: 201601
